FAERS Safety Report 4719522-9 (Version None)
Quarter: 2005Q3

REPORT INFORMATION
  Report Type: 
  Country: None (occurrence: None)
  Receive Date: 20050719
  Receipt Date: 20050719
  Transmission Date: 20060218
  Serious: Yes (Hospitalization)
  Sender: FDA-Public Use
  Company Number: None

PATIENT
  Sex: Male

DRUGS (10)
  1. TERAZOSIN 2 MG [Suspect]
     Indication: BENIGN PROSTATIC HYPERPLASIA
     Dosage: 2 MG HS ORAL
     Route: 048
  2. PYRIDOXINE HCL [Concomitant]
  3. BENZTROPINE [Concomitant]
  4. RISPERIDONE [Concomitant]
  5. APAP TAB [Concomitant]
  6. PERPHENAZINE [Concomitant]
  7. TRAZODONE HCL [Concomitant]
  8. VALPROIC ACID [Concomitant]
  9. LEVOTHYROXINE SODIUM [Concomitant]
  10. ATENOLOL [Concomitant]

REACTIONS (3)
  - DIZZINESS [None]
  - FALL [None]
  - ORTHOSTATIC HYPOTENSION [None]
